FAERS Safety Report 18041795 (Version 1)
Quarter: 2020Q3

REPORT INFORMATION
  Report Type: Spontaneous
  Country: GB (occurrence: GB)
  Receive Date: 20200720
  Receipt Date: 20200720
  Transmission Date: 20201103
  Serious: Yes (Other)
  Sender: FDA-Public Use
  Company Number: GB-TEVA-2020-GB-1801304

PATIENT
  Age: 65 Year
  Sex: Female
  Weight: 70 kg

DRUGS (1)
  1. PACLITAXEL. [Suspect]
     Active Substance: PACLITAXEL
     Indication: OVARIAN CANCER
     Dosage: 336 MG
     Route: 042
     Dates: start: 20200616, end: 20200616

REACTIONS (6)
  - Infusion related reaction [Recovering/Resolving]
  - Erythema [Unknown]
  - Tachycardia [Unknown]
  - Rash erythematous [Unknown]
  - Feeling abnormal [Unknown]
  - Flushing [Unknown]

NARRATIVE: CASE EVENT DATE: 20200625
